FAERS Safety Report 5911040-5 (Version None)
Quarter: 2008Q4

REPORT INFORMATION
  Report Type: 
  Country: None (occurrence: None)
  Receive Date: 20081007
  Receipt Date: 20081003
  Transmission Date: 20090506
  Serious: Yes (Hospitalization)
  Sender: FDA-Public Use
  Company Number: US-ASTRAZENECA-2008UW21648

PATIENT
  Age: 66 Year
  Sex: Female

DRUGS (20)
  1. ARIMIDEX [Suspect]
     Route: 048
     Dates: start: 20050101
  2. CITRAZINE [Concomitant]
  3. KADIAN [Concomitant]
  4. LIPITOR [Concomitant]
  5. BENICAR [Concomitant]
  6. MAXZIDE [Concomitant]
  7. CYMBALTA [Concomitant]
  8. ACTONEL [Concomitant]
  9. PREVACID [Concomitant]
  10. COMBIVENT [Concomitant]
  11. KLONOPIN [Concomitant]
  12. NASONEX [Concomitant]
  13. GLYBURIDE [Concomitant]
  14. METFORMIN HCL [Concomitant]
  15. NORCO [Concomitant]
  16. SINGULAIR [Concomitant]
  17. ADVAIR DISKUS 100/50 [Concomitant]
  18. AMBIEN [Concomitant]
  19. NEURONTIN [Concomitant]
  20. LEVOXYL [Concomitant]

REACTIONS (6)
  - ARTHRITIS [None]
  - HEADACHE [None]
  - NEUROPATHY PERIPHERAL [None]
  - POOR QUALITY SLEEP [None]
  - RESTLESS LEGS SYNDROME [None]
  - THYROID NEOPLASM [None]
